FAERS Safety Report 6997964-9 (Version None)
Quarter: 2010Q3

REPORT INFORMATION
  Report Type: 
  Country: None (occurrence: None)
  Receive Date: 20100920
  Receipt Date: 20100906
  Transmission Date: 20110219
  Serious: Yes (Hospitalization)
  Sender: FDA-Public Use
  Company Number: GB-JNJFOC-20100902917

PATIENT
  Age: 58 Year
  Sex: Female
  Weight: 65 kg

DRUGS (11)
  1. REMICADE [Suspect]
     Indication: RHEUMATOID ARTHRITIS
     Route: 042
  2. ALENDRONATE SODIUM [Concomitant]
     Indication: OSTEOPOROSIS PROPHYLAXIS
  3. AMITRIPTYLINE HCL [Concomitant]
     Indication: SEDATION
  4. AMITRIPTYLINE HCL [Concomitant]
     Indication: PAIN
  5. CALCICHEW D3 [Concomitant]
     Indication: OSTEOPOROSIS PROPHYLAXIS
  6. CO-DYDRAMOL [Concomitant]
     Indication: ANALGESIC THERAPY
  7. DIHYDROCODEINE [Concomitant]
     Indication: ANALGESIC THERAPY
  8. FOLIC ACID [Concomitant]
  9. METHOTREXATE [Concomitant]
     Indication: RHEUMATOID ARTHRITIS
  10. OMEPRAZOLE [Concomitant]
  11. PREDNISOLONE [Concomitant]
     Indication: RHEUMATOID ARTHRITIS

REACTIONS (6)
  - CEREBELLAR INFARCTION [None]
  - DIZZINESS [None]
  - DYSARTHRIA [None]
  - EMBOLIC STROKE [None]
  - HEADACHE [None]
  - MUSCULAR WEAKNESS [None]
